FAERS Safety Report 4696247-X (Version None)
Quarter: 2005Q2

REPORT INFORMATION
  Report Type: 
  Country: None (occurrence: None)
  Receive Date: 20050621
  Receipt Date: 20050615
  Transmission Date: 20051028
  Serious: Yes (Death)
  Sender: FDA-Public Use
  Company Number: 05-06-1043

PATIENT
  Age: 35 Year
  Sex: Male

DRUGS (1)
  1. CLOZAPINE [Suspect]
     Indication: SCHIZOPHRENIA, PARANOID TYPE
     Dosage: 200-500MG QD ORAL
     Route: 048
     Dates: start: 20000701, end: 20050601

REACTIONS (3)
  - CONVULSION [None]
  - DEHYDRATION [None]
  - HEAT STROKE [None]
